FAERS Safety Report 8781207 (Version 2)
Quarter: 2013Q4

REPORT INFORMATION
  Report Type: Spontaneous
  Country: US (occurrence: US)
  Receive Date: 20120913
  Receipt Date: 20131002
  Transmission Date: 20140711
  Serious: Yes (Hospitalization, Other)
  Sender: FDA-Public Use
  Company Number: US-009507513-1209USA001516

PATIENT
  Sex: Female

DRUGS (6)
  1. FOSAMAX [Suspect]
     Indication: OSTEOPOROSIS
     Dosage: 70 MG, UNK
     Route: 048
     Dates: start: 2005, end: 200601
  2. FOSAMAX [Suspect]
     Indication: OSTEOPENIA
  3. BONIVA [Suspect]
     Indication: OSTEOPOROSIS
     Dosage: 150 MG, UNK
     Route: 048
     Dates: start: 200601, end: 200902
  4. BONIVA [Suspect]
     Indication: OSTEOPENIA
  5. ALENDRONATE SODIUM [Suspect]
     Indication: OSTEOPOROSIS
     Dosage: 70 MG, UNK
     Route: 048
  6. PROTONIX [Concomitant]
     Dosage: UNK
     Dates: start: 2005, end: 2012

REACTIONS (9)
  - Femur fracture [Unknown]
  - Intramedullary rod insertion [Unknown]
  - Lung neoplasm malignant [Unknown]
  - Adverse event [Unknown]
  - Adverse event [Unknown]
  - Impaired healing [Unknown]
  - Localised infection [Unknown]
  - Low turnover osteopathy [Unknown]
  - Hypothyroidism [Unknown]
